FAERS Safety Report 14484479 (Version 1)
Quarter: 2018Q1

REPORT INFORMATION
  Report Type: Spontaneous
  Country: US (occurrence: US)
  Receive Date: 20180203
  Receipt Date: 20180203
  Transmission Date: 20180509
  Serious: Yes (Other)
  Sender: FDA-Public Use
  Company Number: None

PATIENT
  Age: 54 Year
  Sex: Female
  Weight: 68.85 kg

DRUGS (1)
  1. TOLCYLEN ANTIFUNGAL SOLUTION [Suspect]
     Active Substance: TOLNAFTATE
     Indication: FUNGAL INFECTION
     Dosage: ?          QUANTITY:7.5 TUBE;?
     Route: 061
     Dates: start: 20180106, end: 20180127

REACTIONS (1)
  - Onychomadesis [None]

NARRATIVE: CASE EVENT DATE: 20180201
